FAERS Safety Report 22018178 (Version 5)
Quarter: 2024Q4

REPORT INFORMATION
  Report Type: Spontaneous
  Country: JP (occurrence: JP)
  Receive Date: 20230221
  Receipt Date: 20241025
  Transmission Date: 20250114
  Serious: Yes (Hospitalization, Other)
  Sender: MERCK
  Company Number: JP-MSD-M2023-06408

PATIENT
  Age: 5 Decade
  Sex: Female

DRUGS (8)
  1. KEYTRUDA [Suspect]
     Active Substance: PEMBROLIZUMAB
     Indication: Cervix carcinoma
     Dosage: 200 MILLIGRAM, Q3W
     Route: 041
     Dates: start: 202212, end: 2023
  2. CARBOPLATIN [Suspect]
     Active Substance: CARBOPLATIN
     Indication: Cervix carcinoma
     Dosage: UNK
     Route: 065
     Dates: start: 202212
  3. CARBOPLATIN [Suspect]
     Active Substance: CARBOPLATIN
     Dosage: UNK
     Route: 065
  4. PACLITAXEL [Suspect]
     Active Substance: PACLITAXEL
     Indication: Cervix carcinoma
     Dosage: UNK
     Route: 065
     Dates: start: 202212
  5. ENSITRELVIR FUMARATE [Suspect]
     Active Substance: ENSITRELVIR FUMARATE
     Indication: Coronavirus infection
     Dosage: UNK
     Route: 065
     Dates: start: 20240930, end: 20241004
  6. BEVACIZUMAB [Concomitant]
     Active Substance: BEVACIZUMAB
     Indication: Cervix carcinoma
     Dosage: UNK
     Route: 065
     Dates: start: 202212
  7. TELMISARTAN [Concomitant]
     Active Substance: TELMISARTAN
     Dosage: UNK
     Route: 065
  8. ATORVASTATIN CALCIUM TRIHYDRATE [Concomitant]
     Active Substance: ATORVASTATIN CALCIUM TRIHYDRATE
     Dosage: UNK
     Route: 065

REACTIONS (10)
  - Immune-mediated adrenal insufficiency [Recovered/Resolved]
  - Immune-mediated hypothyroidism [Recovering/Resolving]
  - Nausea [Unknown]
  - Dehydration [Unknown]
  - Stevens-Johnson syndrome [Unknown]
  - Hypoaesthesia [Unknown]
  - Coronavirus infection [Unknown]
  - Malaise [Unknown]
  - Pyrexia [Unknown]
  - Hyperaemia [Unknown]

NARRATIVE: CASE EVENT DATE: 20221201
